FAERS Safety Report 8119703-0 (Version None)
Quarter: 2012Q1

REPORT INFORMATION
  Report Type: 
  Country: None (occurrence: None)
  Receive Date: 20120207
  Receipt Date: 20120130
  Transmission Date: 20120608
  Serious: Yes (Other)
  Sender: FDA-Public Use
  Company Number: PHEH2006US12309

PATIENT
  Sex: Female
  Weight: 74.829 kg

DRUGS (19)
  1. PEPCID [Concomitant]
     Dosage: 20 MG, UNK
  2. PREDNISONE TAB [Concomitant]
  3. ZOMETA [Suspect]
  4. CALCITRIOL [Concomitant]
     Dosage: 0.25 MG, UNK
  5. ARICEPT [Concomitant]
  6. TRIAMTERENE [Concomitant]
  7. CAPTOPRIL [Concomitant]
  8. LISINOPRIL [Concomitant]
     Dosage: 40 MG, UNK
  9. PENICILLIN [Concomitant]
     Dosage: 500 MG, UNK
  10. NIFEDIPINE [Concomitant]
  11. NORVASC [Concomitant]
     Dosage: 2.5 MG, UNK
  12. MAXZIDE [Concomitant]
  13. VITAMIN B6 [Concomitant]
  14. FUROSEMIDE [Concomitant]
     Dosage: 20 MG, UNK
  15. DEXAMETHASONE [Concomitant]
  16. AREDIA [Suspect]
     Indication: BONE LOSS
     Dosage: 90 MG, MONTHLY
  17. HYDROCODONE BITARTRATE [Concomitant]
  18. PROCRIT                            /00909301/ [Concomitant]
  19. METOPROLOL [Concomitant]

REACTIONS (48)
  - INJURY [None]
  - PAIN [None]
  - BONE DISORDER [None]
  - TOOTH DISORDER [None]
  - MULTIPLE MYELOMA [None]
  - DYSPNOEA [None]
  - POOR PERSONAL HYGIENE [None]
  - LOCAL SWELLING [None]
  - PROTEINURIA [None]
  - OSTEONECROSIS OF JAW [None]
  - NEUROPATHY PERIPHERAL [None]
  - MENTAL STATUS CHANGES [None]
  - BREAST OEDEMA [None]
  - DENTAL CARIES [None]
  - OPEN WOUND [None]
  - HYPERPARATHYROIDISM [None]
  - SPINAL CORD COMPRESSION [None]
  - PERICARDIAL EFFUSION [None]
  - SWELLING [None]
  - NEPHROSCLEROSIS [None]
  - RENAL FAILURE CHRONIC [None]
  - CARDIOMEGALY [None]
  - AZOTAEMIA [None]
  - ANAEMIA OF CHRONIC DISEASE [None]
  - CATARACT [None]
  - JOINT EFFUSION [None]
  - MUSCULAR WEAKNESS [None]
  - BACK PAIN [None]
  - ARTERIOSCLEROSIS [None]
  - INTERVERTEBRAL DISC DEGENERATION [None]
  - HYPERKALAEMIA [None]
  - PHYSICAL DISABILITY [None]
  - HALLUCINATION [None]
  - ARTERIOVENOUS FISTULA SITE COMPLICATION [None]
  - CHONDROCALCINOSIS PYROPHOSPHATE [None]
  - INTRACRANIAL VENOUS SINUS THROMBOSIS [None]
  - ARTHRALGIA [None]
  - METABOLIC ACIDOSIS [None]
  - FOOT FRACTURE [None]
  - OSTEOMYELITIS [None]
  - COMPRESSION FRACTURE [None]
  - NEPHROPATHY TOXIC [None]
  - BLOOD CREATININE INCREASED [None]
  - ANXIETY [None]
  - OEDEMA MOUTH [None]
  - DEMENTIA [None]
  - CORONARY ARTERY DISEASE [None]
  - DECREASED APPETITE [None]
